FAERS Safety Report 11792754 (Version 1)
Quarter: 2015Q4

REPORT INFORMATION
  Report Type: Spontaneous
  Country: US (occurrence: None)
  Receive Date: 20151130
  Receipt Date: 20151130
  Transmission Date: 20160305
  Serious: Yes (Hospitalization)
  Sender: FDA-Public Use
  Company Number: None

PATIENT
  Age: 4 Year
  Sex: Female
  Weight: 14.8 kg

DRUGS (4)
  1. MERCAPTOPURINE. [Suspect]
     Active Substance: MERCAPTOPURINE
     Dates: end: 20151115
  2. VINCRISTINE SULFATE. [Suspect]
     Active Substance: VINCRISTINE SULFATE
     Dates: end: 20151111
  3. DEXAMETHASONE. [Suspect]
     Active Substance: DEXAMETHASONE
     Dates: end: 20151115
  4. METHOTREXATE [Suspect]
     Active Substance: METHOTREXATE
     Dates: end: 20151111

REACTIONS (9)
  - Hypotension [None]
  - Neutrophil count decreased [None]
  - Enterobacter test positive [None]
  - Escherichia test positive [None]
  - Enterovirus test positive [None]
  - Gastroenteritis viral [None]
  - Rubulavirus test positive [None]
  - Human rhinovirus test positive [None]
  - Pseudomonas test positive [None]

NARRATIVE: CASE EVENT DATE: 20151118
